FAERS Safety Report 26024723 (Version 1)
Quarter: 2025Q4

REPORT INFORMATION
  Report Type: Spontaneous
  Country: CN (occurrence: CN)
  Receive Date: 20251111
  Receipt Date: 20251111
  Transmission Date: 20260117
  Serious: Yes (Death)
  Sender: PACIRA
  Company Number: CN-ORG100016242-2025000448

PATIENT

DRUGS (3)
  1. BUPIVACAINE [Suspect]
     Active Substance: BUPIVACAINE
     Indication: Postoperative analgesia
     Dosage: NOT PROVIDED
     Route: 050
  2. BUPIVACAINE [Suspect]
     Active Substance: BUPIVACAINE
     Indication: Postoperative analgesia
     Dosage: NOT PROVIDED
     Route: 050
  3. SALINE [Suspect]
     Active Substance: SODIUM CHLORIDE
     Indication: Postoperative analgesia
     Dosage: NOT PROVIDED
     Route: 050

REACTIONS (1)
  - Death [Fatal]
